FAERS Safety Report 9096119 (Version 1)
Quarter: 2013Q1

REPORT INFORMATION
  Report Type: Report from Study
  Country: IT (occurrence: IT)
  Receive Date: 20130207
  Receipt Date: 20130207
  Transmission Date: 20140127
  Serious: Yes (Death)
  Sender: FDA-Public Use
  Company Number: IT-BAYER-2013-014724

PATIENT
  Age: 76 Year
  Sex: Male

DRUGS (3)
  1. ACETYLSALICYLIC ACID({=100 MG) [Suspect]
     Indication: CORONARY ARTERIAL STENT INSERTION
     Dosage: DAILY DOSE 100 MG
  2. CLOPIDOGREL [Suspect]
     Indication: CORONARY ARTERIAL STENT INSERTION
  3. WARFARIN [Suspect]
     Indication: ATRIAL FIBRILLATION

REACTIONS (1)
  - Haemorrhage intracranial [Fatal]
